FAERS Safety Report 7755020-6 (Version None)
Quarter: 2011Q3

REPORT INFORMATION
  Report Type: 
  Country: None (occurrence: None)
  Receive Date: 20110916
  Receipt Date: 20110908
  Transmission Date: 20111222
  Serious: Yes (Death, Other)
  Sender: FDA-Public Use
  Company Number: JP-BRISTOL-MYERS SQUIBB COMPANY-16058950

PATIENT
  Age: 61 Year
  Sex: Male

DRUGS (9)
  1. ABILIFY [Suspect]
     Indication: SCHIZOPHRENIA
     Route: 048
     Dates: start: 20110826, end: 20110827
  2. LODOPIN [Concomitant]
     Dosage: TABS.
     Dates: start: 20110802, end: 20110822
  3. MAGMITT [Concomitant]
     Dosage: TABS.
  4. LENDORMIN [Concomitant]
     Dosage: TABS.
     Dates: start: 20110827
  5. NITRAZEPAM [Concomitant]
     Dosage: TABS
  6. LEVOTOMIN [Concomitant]
     Dosage: TABS.
  7. SENNOSIDE [Concomitant]
     Dosage: TABS.
  8. DIAZEPAM [Concomitant]
     Dosage: TABS.
  9. ARTANE [Concomitant]
     Dosage: TABS.

REACTIONS (1)
  - BLOOD GLUCOSE DECREASED [None]
